FAERS Safety Report 11132038 (Version 1)
Quarter: 2015Q2

REPORT INFORMATION
  Report Type: Spontaneous
  Country: US (occurrence: None)
  Receive Date: 20150521
  Receipt Date: 20150521
  Transmission Date: 20150821
  Serious: Yes (Life-Threatening)
  Sender: FDA-Public Use
  Company Number: None

PATIENT
  Age: 74 Year
  Sex: Male
  Weight: 63.2 kg

DRUGS (2)
  1. CEFAZOLIN/DEXTROSE [Suspect]
     Active Substance: CEFAZOLIN\DEXTROSE
     Indication: SURGERY
     Dosage: 2 GM ONCE IV
     Route: 042
     Dates: start: 20150416, end: 20150416
  2. CIPROFLOXACIN. [Suspect]
     Active Substance: CIPROFLOXACIN
     Indication: SURGERY
     Dosage: 400 MG ONCE IV
     Route: 042
     Dates: start: 20150416, end: 20150416

REACTIONS (5)
  - Rash [None]
  - Infusion site urticaria [None]
  - Respiratory depression [None]
  - Pruritus [None]
  - Hypotension [None]

NARRATIVE: CASE EVENT DATE: 20150416
